FAERS Safety Report 10498314 (Version 2)
Quarter: 2014Q4

REPORT INFORMATION
  Report Type: Spontaneous
  Country: NL (occurrence: NL)
  Receive Date: 20141006
  Receipt Date: 20141022
  Transmission Date: 20150528
  Serious: Yes (Other)
  Sender: FDA-Public Use
  Company Number: NL-TEVA-512920ISR

PATIENT
  Age: 64 Year
  Sex: Female
  Weight: 45 kg

DRUGS (4)
  1. OFLOXACINE PCH TABLET FILMOMHULD [Suspect]
     Active Substance: OFLOXACIN
     Indication: CYSTITIS NONINFECTIVE
  2. OFLOXACINE PCH TABLET FILMOMHULD [Suspect]
     Active Substance: OFLOXACIN
     Indication: PNEUMONIA
     Dosage: 800 MILLIGRAM DAILY;
     Route: 048
     Dates: start: 20140926, end: 20140930
  3. ACETYLSALICYLZUUR [Concomitant]
     Indication: ANTICOAGULANT THERAPY
     Dosage: 80 MILLIGRAM DAILY;
     Route: 048
  4. HYDROCOBAMINE [Concomitant]
     Active Substance: HYDROXOCOBALAMIN HYDROCHLORIDE
     Indication: FATIGUE
     Route: 058

REACTIONS (2)
  - Deafness [Not Recovered/Not Resolved]
  - Sudden hearing loss [Not Recovered/Not Resolved]

NARRATIVE: CASE EVENT DATE: 20140926
